FAERS Safety Report 21443039 (Version 1)
Quarter: 2022Q4

REPORT INFORMATION
  Report Type: Spontaneous
  Country: AU (occurrence: AU)
  Receive Date: 20221012
  Receipt Date: 20221012
  Transmission Date: 20230112
  Serious: Yes (Other)
  Sender: FDA-Public Use
  Company Number: AU-BAUSCHBL-2022BNL000972

PATIENT
  Age: 42 Year
  Sex: Male

DRUGS (2)
  1. PREDNISOLONE [Suspect]
     Active Substance: PREDNISOLONE
     Indication: Product used for unknown indication
     Route: 047
  2. FLUTICASONE PROPIONATE\SALMETEROL XINAFOATE [Suspect]
     Active Substance: FLUTICASONE PROPIONATE\SALMETEROL XINAFOATE
     Indication: Product used for unknown indication
     Route: 065

REACTIONS (11)
  - Acute generalised exanthematous pustulosis [Unknown]
  - Disseminated varicella zoster virus infection [Unknown]
  - Pneumonia viral [Unknown]
  - Respiratory failure [Unknown]
  - Thrombocytopenia [Unknown]
  - Asthma [Unknown]
  - Cough [Unknown]
  - Pyrexia [Unknown]
  - Rash papular [Unknown]
  - Respiratory alkalosis [Unknown]
  - Wheezing [Unknown]
